FAERS Safety Report 14459455 (Version 1)
Quarter: 2018Q1

REPORT INFORMATION
  Report Type: Spontaneous
  Country: US (occurrence: US)
  Receive Date: 20180130
  Receipt Date: 20180130
  Transmission Date: 20180509
  Serious: No
  Sender: FDA-Public Use
  Company Number: US-BIOMARINAP-US-2018-116895

PATIENT
  Age: 4 Year
  Sex: Male

DRUGS (1)
  1. KUVAN [Suspect]
     Active Substance: SAPROPTERIN DIHYDROCHLORIDE
     Indication: PHENYLKETONURIA
     Dosage: 300 MG, QD
     Route: 048
     Dates: start: 20170329

REACTIONS (2)
  - Psychomotor hyperactivity [Unknown]
  - Anger [Unknown]

NARRATIVE: CASE EVENT DATE: 20180125
